FAERS Safety Report 7581480-X (Version None)
Quarter: 2011Q2

REPORT INFORMATION
  Report Type: 
  Country: None (occurrence: None)
  Receive Date: 20110629
  Receipt Date: 20110620
  Transmission Date: 20111010
  Serious: Yes (Hospitalization, Other)
  Sender: FDA-Public Use
  Company Number: PHFR2011GB03237

PATIENT
  Sex: Male

DRUGS (5)
  1. CLOZAPINE [Suspect]
     Indication: SCHIZOAFFECTIVE DISORDER
     Dosage: 200 MG, BID
     Route: 048
     Dates: start: 20090501
  2. HYOSCINE [Concomitant]
     Dosage: 300 UG, BID
  3. VALPROIC ACID [Concomitant]
     Dosage: 500 MG, QID
  4. CANNABIS [Suspect]
     Route: 048
  5. LITHIUM CARBONATE [Concomitant]
     Dosage: 800 MG, QD

REACTIONS (6)
  - SCHIZOAFFECTIVE DISORDER [None]
  - CONDITION AGGRAVATED [None]
  - ANTIPSYCHOTIC DRUG LEVEL INCREASED [None]
  - MENTAL IMPAIRMENT [None]
  - INSOMNIA [None]
  - DRUG ABUSE [None]
